FAERS Safety Report 16043104 (Version 1)
Quarter: 2019Q1

REPORT INFORMATION
  Report Type: Other
  Country: GB (occurrence: GB)
  Receive Date: 20190306
  Receipt Date: 20190306
  Transmission Date: 20190418
  Serious: Yes (Other)
  Sender: FDA-Public Use
  Company Number: GB-HERITAGE PHARMACEUTICALS-2019HTG00072

PATIENT
  Age: 70 Year
  Sex: Female

DRUGS (2)
  1. AMOXICILLIN. [Concomitant]
     Active Substance: AMOXICILLIN
     Dosage: UNK
     Dates: start: 201901
  2. ACYCLOVIR. [Suspect]
     Active Substance: ACYCLOVIR
     Indication: HERPES ZOSTER
     Dosage: 800 MG, 1X/DAY
     Dates: start: 20190201, end: 20190206

REACTIONS (8)
  - Diarrhoea [Recovering/Resolving]
  - Headache [Recovering/Resolving]
  - Malaise [Not Recovered/Not Resolved]
  - Abdominal discomfort [Recovering/Resolving]
  - Pruritus generalised [Recovering/Resolving]
  - Feeling hot [Not Recovered/Not Resolved]
  - Tremor [Recovered/Resolved]
  - Erythema [Not Recovered/Not Resolved]

NARRATIVE: CASE EVENT DATE: 20190202
